FAERS Safety Report 19842094 (Version 4)
Quarter: 2022Q1

REPORT INFORMATION
  Report Type: Report from Study
  Country: US (occurrence: US)
  Receive Date: 20210916
  Receipt Date: 20220111
  Transmission Date: 20220424
  Serious: Yes (Death, Hospitalization)
  Sender: FDA-Public Use
  Company Number: US-EXELIXIS-CABO-21044131

PATIENT
  Age: 47 Year
  Sex: Male

DRUGS (9)
  1. CABOMETYX [Suspect]
     Active Substance: CABOZANTINIB S-MALATE
     Indication: Renal cell carcinoma
     Dosage: 60 MG
     Dates: start: 20210903, end: 202109
  2. CABOMETYX [Suspect]
     Active Substance: CABOZANTINIB S-MALATE
     Dosage: 60 MG
     Dates: start: 20211004
  3. FENTANYL [Concomitant]
     Active Substance: FENTANYL
  4. DEXAMETHASONE [Concomitant]
     Active Substance: DEXAMETHASONE
  5. OXYCODONE [Concomitant]
     Active Substance: OXYCODONE
  6. BENZONATATE [Concomitant]
     Active Substance: BENZONATATE
  7. LORAZEPAM [Concomitant]
     Active Substance: LORAZEPAM
  8. AMLODIPINE [Concomitant]
     Active Substance: AMLODIPINE BESYLATE
  9. FUROSEMIDE [Concomitant]
     Active Substance: FUROSEMIDE

REACTIONS (7)
  - Peripheral swelling [Recovering/Resolving]
  - Soft tissue swelling [Not Recovered/Not Resolved]
  - Death [Fatal]
  - Paraesthesia [Unknown]
  - Pneumonia [Not Recovered/Not Resolved]
  - Nausea [Unknown]
  - Vomiting [Unknown]

NARRATIVE: CASE EVENT DATE: 20210905
